FAERS Safety Report 6076188-6 (Version None)
Quarter: 2009Q1

REPORT INFORMATION
  Report Type: 
  Country: None (occurrence: None)
  Receive Date: 20090210
  Receipt Date: 20090204
  Transmission Date: 20090719
  Serious: Yes (Death)
  Sender: FDA-Public Use
  Company Number: 2009JP000612

PATIENT
  Age: 46 Year
  Sex: Male

DRUGS (3)
  1. PROGRAF [Suspect]
     Indication: ALLOGENIC BONE MARROW TRANSPLANTATION THERAPY
  2. METHOTREXATE [Concomitant]
  3. CYCLOPHOSPHAMIDE [Concomitant]

REACTIONS (8)
  - ADENOVIRUS INFECTION [None]
  - ALTERED STATE OF CONSCIOUSNESS [None]
  - ANURIA [None]
  - CONVULSION [None]
  - CYSTITIS HAEMORRHAGIC [None]
  - HAEMODIALYSIS [None]
  - RESPIRATORY DISORDER [None]
  - TUBULOINTERSTITIAL NEPHRITIS [None]
